FAERS Safety Report 6470964-3 (Version None)
Quarter: 2009Q4

REPORT INFORMATION
  Report Type: 
  Country: None (occurrence: None)
  Receive Date: 20091203
  Receipt Date: 20080410
  Transmission Date: 20100525
  Serious: Yes (Hospitalization, Other)
  Sender: FDA-Public Use
  Company Number: US-ELI_LILLY_AND_COMPANY-US200801004664

PATIENT
  Sex: Female
  Weight: 77.098 kg

DRUGS (2)
  1. ZYPREXA [Suspect]
     Dosage: 0.5 MG, UNK
     Dates: start: 19950101
  2. ZYPREXA [Suspect]
     Dosage: 15 MG, UNK
     Dates: end: 20040101

REACTIONS (12)
  - BLOOD CHOLESTEROL INCREASED [None]
  - BLOOD TRIGLYCERIDES INCREASED [None]
  - CARDIAC FAILURE CONGESTIVE [None]
  - CARDIOMYOPATHY [None]
  - CHOLELITHIASIS [None]
  - DIABETES MELLITUS [None]
  - DRUG EXPOSURE DURING PREGNANCY [None]
  - GESTATIONAL DIABETES [None]
  - HYPERGLYCAEMIA [None]
  - METABOLIC SYNDROME [None]
  - MYOCARDIAL ISCHAEMIA [None]
  - OBESITY [None]
